FAERS Safety Report 12484511 (Version 1)
Quarter: 2016Q2

REPORT INFORMATION
  Report Type: Spontaneous
  Country: FR (occurrence: FR)
  Receive Date: 20160621
  Receipt Date: 20160621
  Transmission Date: 20160815
  Serious: Yes (Other)
  Sender: FDA-Public Use
  Company Number: FR-PFIZER INC-2016300586

PATIENT
  Age: 78 Year
  Sex: Male

DRUGS (8)
  1. BISOPROLOL [Concomitant]
     Active Substance: BISOPROLOL
  2. RAMIPRIL. [Concomitant]
     Active Substance: RAMIPRIL
  3. METFORMIN [Concomitant]
     Active Substance: METFORMIN HYDROCHLORIDE
  4. TOVIAZ [Suspect]
     Active Substance: FESOTERODINE FUMARATE
     Dosage: 8 MG, 1X/DAY AT NOON
     Dates: start: 20160601
  5. INSULIN [Concomitant]
     Active Substance: INSULIN NOS
  6. ATORVASTATIN [Concomitant]
     Active Substance: ATORVASTATIN
  7. KARDEGIC [Concomitant]
     Active Substance: ASPIRIN LYSINE
     Indication: ARTERIAL REPAIR
  8. PARIET [Concomitant]
     Active Substance: RABEPRAZOLE SODIUM
     Indication: ABDOMINAL DISCOMFORT

REACTIONS (9)
  - Colitis [Unknown]
  - Headache [Unknown]
  - Fatigue [Unknown]
  - Hypersomnia [Unknown]
  - Diarrhoea [Unknown]
  - Pollakiuria [Unknown]
  - Anal incontinence [Unknown]
  - Renal injury [Unknown]
  - Eye disorder [Unknown]

NARRATIVE: CASE EVENT DATE: 201606
